FAERS Safety Report 11327351 (Version 1)
Quarter: 2015Q3

REPORT INFORMATION
  Report Type: Spontaneous
  Country: US (occurrence: US)
  Receive Date: 20150731
  Receipt Date: 20150731
  Transmission Date: 20151125
  Serious: Yes (Other)
  Sender: FDA-Public Use
  Company Number: US-PFIZER INC-2015253247

PATIENT
  Sex: Male

DRUGS (7)
  1. LYRICA [Suspect]
     Active Substance: PREGABALIN
     Indication: PAIN
     Dosage: 100 MG, 2X/DAY
  2. LYRICA [Suspect]
     Active Substance: PREGABALIN
     Indication: NEURALGIA
     Dosage: 150 MG, 2X/DAY
  3. FUROSEMIDE. [Concomitant]
     Active Substance: FUROSEMIDE
  4. OXYCODONE [Concomitant]
     Active Substance: OXYCODONE
     Dosage: UNK
  5. TRAMADOL. [Concomitant]
     Active Substance: TRAMADOL
     Dosage: UNK
  6. LYRICA [Suspect]
     Active Substance: PREGABALIN
     Indication: DIABETIC NEUROPATHY
     Dosage: 50 MG, UNK
  7. MORPHINE SULPHATE [Concomitant]
     Active Substance: MORPHINE SULFATE
     Dosage: UNK

REACTIONS (11)
  - Nerve compression [Unknown]
  - Weaning failure [Unknown]
  - Joint swelling [Not Recovered/Not Resolved]
  - Paraesthesia [Unknown]
  - Respiratory disorder [Unknown]
  - Asbestosis [Unknown]
  - Sensory loss [Unknown]
  - Weight increased [Unknown]
  - Diabetes mellitus [Unknown]
  - Drug ineffective [Unknown]
  - Fluid retention [Unknown]
